FAERS Safety Report 23124147 (Version 1)
Quarter: 2023Q4

REPORT INFORMATION
  Report Type: Spontaneous
  Country: EU (occurrence: EU)
  Receive Date: 20231030
  Receipt Date: 20231030
  Transmission Date: 20240109
  Serious: Yes (Other)
  Sender: FDA-Public Use
  Company Number: EU-Orion Corporation ORION PHARMA-TREX2023-0229

PATIENT

DRUGS (12)
  1. METHOTREXATE [Suspect]
     Active Substance: METHOTREXATE
     Indication: Rheumatoid arthritis
  2. METHOTREXATE [Suspect]
     Active Substance: METHOTREXATE
     Indication: Rheumatoid arthritis
     Dosage: MAX 25 MG/WEEK ?DISCONTINUED BEFORE THE PLANNED PREGNANCY
  3. METHOTREXATE [Suspect]
     Active Substance: METHOTREXATE
     Indication: Rheumatoid arthritis
     Dosage: INITIALLY ORALLY, THEN SUBCUTANEOUSLY
     Dates: start: 201801
  4. DICLOFENAC [Concomitant]
     Active Substance: DICLOFENAC
  5. SULFASALAZINE [Concomitant]
     Active Substance: SULFASALAZINE
     Dosage: AT A MAXIMUM DOSE OF 3 G/DAY, COMBINED THERAPY WITH MTX
     Dates: start: 201806
  6. DICLOFENAC SODIUM [Concomitant]
     Active Substance: DICLOFENAC\DICLOFENAC SODIUM
     Dosage: 1X1 TBL
  7. PREDNISONE [Concomitant]
     Active Substance: PREDNISONE
  8. PREDNISONE [Concomitant]
     Active Substance: PREDNISONE
     Dosage: 2.5-5 MG/DAY
  9. PREDNISONE [Concomitant]
     Active Substance: PREDNISONE
     Dosage: AVERAGE 10 MG/D
  10. TOCILIZUMAB [Concomitant]
     Active Substance: TOCILIZUMAB
     Dosage: 162 MG SC1X PER WEEK
  11. ADALIMUMAB [Concomitant]
     Active Substance: ADALIMUMAB\ISOPROPYL ALCOHOL
  12. METHOTREXATE SODIUM [Concomitant]
     Active Substance: METHOTREXATE SODIUM

REACTIONS (2)
  - Drug ineffective [Recovering/Resolving]
  - Rheumatoid arthritis [Recovering/Resolving]
